FAERS Safety Report 8287634-1 (Version None)
Quarter: 2012Q2

REPORT INFORMATION
  Report Type: 
  Country: None (occurrence: None)
  Receive Date: 20120416
  Receipt Date: 20120410
  Transmission Date: 20120825
  Serious: Yes (Other)
  Sender: FDA-Public Use
  Company Number: PHHY2012FR022770

PATIENT
  Sex: Male

DRUGS (3)
  1. RASILEZ [Suspect]
     Indication: HYPERTENSION
     Dosage: 1 DF, DAILY
     Route: 048
     Dates: start: 20111013, end: 20120228
  2. LERCANIDIPINE [Concomitant]
  3. ASPIRIN [Concomitant]

REACTIONS (2)
  - BRONCHITIS [None]
  - COUGH [None]
